FAERS Safety Report 5483366-3 (Version None)
Quarter: 2007Q4

REPORT INFORMATION
  Report Type: 
  Country: None (occurrence: None)
  Receive Date: 20071012
  Receipt Date: 20071002
  Transmission Date: 20080405
  Serious: Yes (Hospitalization)
  Sender: FDA-Public Use
  Company Number: US-JNJFOC-20071001388

PATIENT
  Sex: Female
  Weight: 49.9 kg

DRUGS (7)
  1. DURAGESIC-100 [Suspect]
     Indication: PAIN
     Route: 062
  2. NEURONTIN [Concomitant]
     Indication: CONVULSION
     Route: 048
  3. INDERAL LA [Concomitant]
     Indication: MIGRAINE
     Dosage: AT BEDTIME
     Route: 048
  4. AMITRIPTYLINE HCL [Concomitant]
     Indication: SLEEP DISORDER
     Dosage: 2 X 50 MG AT BEDTIME
     Route: 048
  5. FLEXERIL [Concomitant]
     Indication: MUSCLE SPASMS
     Route: 048
  6. LORAZEPAM [Concomitant]
     Indication: ANXIETY
     Dosage: AS NEEDED
     Route: 048
  7. PREVACID [Concomitant]
     Indication: GASTROOESOPHAGEAL REFLUX DISEASE
     Route: 048

REACTIONS (13)
  - ANXIETY [None]
  - BLOOD CHOLESTEROL INCREASED [None]
  - BREAKTHROUGH PAIN [None]
  - CHEST PAIN [None]
  - DRUG INEFFECTIVE [None]
  - FALL [None]
  - LEUKAEMIA [None]
  - MULTIPLE MYELOMA [None]
  - OEDEMA PERIPHERAL [None]
  - PHARMACEUTICAL PRODUCT COMPLAINT [None]
  - RESTLESS LEGS SYNDROME [None]
  - SPINAL FRACTURE [None]
  - WRONG TECHNIQUE IN DRUG USAGE PROCESS [None]
